FAERS Safety Report 6024333-0 (Version None)
Quarter: 2008Q4

REPORT INFORMATION
  Report Type: 
  Country: None (occurrence: None)
  Receive Date: 20081229
  Receipt Date: 20081215
  Transmission Date: 20090506
  Serious: Yes (Other)
  Sender: FDA-Public Use
  Company Number: 2008SP025454

PATIENT
  Age: 72 Year
  Sex: Male
  Weight: 62 kg

DRUGS (4)
  1. TEMODAL [Suspect]
     Indication: BRAIN NEOPLASM
     Dosage: 100 MG;QD;PO
     Route: 048
     Dates: start: 20081101, end: 20081201
  2. TEMODAL [Suspect]
     Indication: BRAIN NEOPLASM
     Dosage: 100 MG;QD;PO
     Route: 048
     Dates: start: 20081201
  3. SELENICA R [Concomitant]
  4. ACINON [Concomitant]

REACTIONS (1)
  - ILEUS [None]
